FAERS Safety Report 16797899 (Version 1)
Quarter: 2019Q3

REPORT INFORMATION
  Report Type: Spontaneous
  Country: US (occurrence: US)
  Receive Date: 20190912
  Receipt Date: 20190912
  Transmission Date: 20191005
  Serious: Yes (Hospitalization, Other)
  Sender: FDA-Public Use
  Company Number: US-ABBVIE-19K-163-2912302-00

PATIENT
  Age: 33 Year
  Sex: Female
  Weight: 71.73 kg

DRUGS (25)
  1. HUMIRA [Suspect]
     Active Substance: ADALIMUMAB
     Route: 058
     Dates: start: 20180321, end: 20181112
  2. HUMIRA [Suspect]
     Active Substance: ADALIMUMAB
     Route: 058
     Dates: start: 20190214, end: 20190508
  3. INFLECTRA [Suspect]
     Active Substance: INFLIXIMAB-DYYB
     Dosage: WEEK 2
     Route: 042
     Dates: start: 2019, end: 2019
  4. FAMOTIDINE. [Concomitant]
     Active Substance: FAMOTIDINE
     Indication: PRODUCT USED FOR UNKNOWN INDICATION
  5. HUMIRA [Suspect]
     Active Substance: ADALIMUMAB
     Route: 058
     Dates: start: 20190212, end: 20190214
  6. HUMIRA [Suspect]
     Active Substance: ADALIMUMAB
     Route: 058
     Dates: start: 20181114, end: 20190212
  7. CYCLOBENZAPRINE. [Concomitant]
     Active Substance: CYCLOBENZAPRINE
     Indication: PRODUCT USED FOR UNKNOWN INDICATION
     Route: 048
     Dates: start: 20190214
  8. CELEBREX [Concomitant]
     Active Substance: CELECOXIB
     Indication: PRODUCT USED FOR UNKNOWN INDICATION
     Dates: start: 20190718
  9. TYLENOL WITH CODEINE [Concomitant]
     Active Substance: ACETAMINOPHEN\CODEINE PHOSPHATE
     Indication: PRODUCT USED FOR UNKNOWN INDICATION
     Dosage: 300 MG-30 MG
  10. HUMIRA [Suspect]
     Active Substance: ADALIMUMAB
     Indication: PRODUCT USED FOR UNKNOWN INDICATION
     Route: 058
     Dates: end: 20180321
  11. REMICADE [Suspect]
     Active Substance: INFLIXIMAB
     Indication: PRODUCT USED FOR UNKNOWN INDICATION
     Route: 065
  12. CELEBREX [Concomitant]
     Active Substance: CELECOXIB
     Indication: PRODUCT USED FOR UNKNOWN INDICATION
     Route: 048
     Dates: start: 20190214
  13. FAMOTIDINE. [Concomitant]
     Active Substance: FAMOTIDINE
     Indication: PRODUCT USED FOR UNKNOWN INDICATION
     Route: 048
  14. XELJANZ [Concomitant]
     Active Substance: TOFACITINIB CITRATE
     Indication: PRODUCT USED FOR UNKNOWN INDICATION
     Route: 048
  15. INFLECTRA [Suspect]
     Active Substance: INFLIXIMAB-DYYB
     Indication: ANKYLOSING SPONDYLITIS
     Dosage: WEEK 0
     Route: 042
     Dates: start: 20190214, end: 2019
  16. INFLECTRA [Suspect]
     Active Substance: INFLIXIMAB-DYYB
     Dosage: WEEK 6
     Route: 042
     Dates: start: 2019, end: 2019
  17. DIPHENHYDRAMINE. [Concomitant]
     Active Substance: DIPHENHYDRAMINE
     Indication: PRODUCT USED FOR UNKNOWN INDICATION
     Route: 042
  18. ACETAMINOPHEN. [Concomitant]
     Active Substance: ACETAMINOPHEN
     Indication: PRODUCT USED FOR UNKNOWN INDICATION
     Route: 048
  19. TAGAMET [Concomitant]
     Active Substance: CIMETIDINE
     Indication: PRODUCT USED FOR UNKNOWN INDICATION
  20. COSENTYX [Concomitant]
     Active Substance: SECUKINUMAB
     Indication: PRODUCT USED FOR UNKNOWN INDICATION
     Dosage: PEN
     Route: 058
     Dates: start: 20190718
  21. INFLECTRA [Suspect]
     Active Substance: INFLIXIMAB-DYYB
     Route: 042
     Dates: start: 201906, end: 20190612
  22. TRAMADOL. [Concomitant]
     Active Substance: TRAMADOL
     Indication: PRODUCT USED FOR UNKNOWN INDICATION
     Dosage: 1 TO 2 TABLETS 8 HOURS AS REQUIRED
     Route: 048
     Dates: start: 20190515
  23. HUMIRA [Suspect]
     Active Substance: ADALIMUMAB
     Route: 058
     Dates: start: 20181112, end: 20181114
  24. INFLECTRA [Suspect]
     Active Substance: INFLIXIMAB-DYYB
     Route: 042
     Dates: start: 20190425, end: 20190606
  25. HYDROXYZINE HCL [Concomitant]
     Active Substance: HYDROXYZINE HYDROCHLORIDE
     Indication: PRODUCT USED FOR UNKNOWN INDICATION
     Dosage: 1 TO 2 AT EVERY BEDTIME
     Route: 048
     Dates: start: 20190508

REACTIONS (49)
  - Drug hypersensitivity [Recovering/Resolving]
  - Fibromyalgia [Unknown]
  - Rash papular [Recovered/Resolved]
  - Pain [Unknown]
  - Urticaria [Recovered/Resolved]
  - Chest pain [Recovered/Resolved]
  - Palatal oedema [Unknown]
  - Tonsillar hypertrophy [Unknown]
  - Swelling [Unknown]
  - Parvovirus infection [Unknown]
  - Blood pressure abnormal [Unknown]
  - Joint stiffness [Unknown]
  - Arthritis [Unknown]
  - Heart rate increased [Unknown]
  - Sciatica [Unknown]
  - Rash pruritic [Recovered/Resolved]
  - Rash erythematous [Recovered/Resolved]
  - Musculoskeletal stiffness [Unknown]
  - Dry eye [Unknown]
  - Ocular hyperaemia [Unknown]
  - Tendon disorder [Unknown]
  - Erythema [Unknown]
  - Arthritis infective [Unknown]
  - Anaphylactic shock [Recovering/Resolving]
  - Rotator cuff syndrome [Unknown]
  - Eye pruritus [Unknown]
  - General physical condition abnormal [Unknown]
  - Asthenopia [Unknown]
  - Chest discomfort [Unknown]
  - Diarrhoea [Unknown]
  - Arthralgia [Unknown]
  - Dyspnoea [Recovering/Resolving]
  - Drug ineffective [Unknown]
  - Eye irritation [Unknown]
  - Fatigue [Unknown]
  - Pulse abnormal [Unknown]
  - Pruritus [Unknown]
  - Pharyngeal erythema [Unknown]
  - Respiratory rate decreased [Unknown]
  - Body mass index abnormal [Unknown]
  - Tongue oedema [Unknown]
  - Dysphonia [Unknown]
  - Lip swelling [Unknown]
  - Body temperature abnormal [Unknown]
  - Wheezing [Unknown]
  - Dysphagia [Unknown]
  - Peripheral swelling [Recovering/Resolving]
  - Body temperature increased [Unknown]
  - Nausea [Unknown]

NARRATIVE: CASE EVENT DATE: 20140829
